FAERS Safety Report 9440999 (Version 1)
Quarter: 2013Q3

REPORT INFORMATION
  Report Type: Spontaneous
  Country: US (occurrence: US)
  Receive Date: 20130801
  Receipt Date: 20130801
  Transmission Date: 20140515
  Serious: Yes (Hospitalization)
  Sender: FDA-Public Use
  Company Number: ACO_37633_2013

PATIENT
  Age: 65 Year
  Sex: Female

DRUGS (10)
  1. AMPYRA (DALFAMPRIDINE) TABLET, 10 MG [Suspect]
     Indication: PRODUCT USED FOR UNKNOWN INDICATION
     Route: 048
     Dates: start: 20130111
  2. FOLIC ACID (FOLIC ACID) [Concomitant]
  3. GABAPENTIN (GABAPENTIN) [Concomitant]
  4. BACLOFEN (BACLOFEN) [Concomitant]
  5. FLOMAX (TAMSULOSIN HYDROCHLORIDE) [Concomitant]
  6. ASPIRIN (ACETYLSALICYLIC ACID) [Concomitant]
  7. COLACE [Concomitant]
  8. VITAMIN C [Concomitant]
  9. VITAMIN D3 (COLECALCIFEROL) [Concomitant]
  10. COPAXONE (GLATIRAMER ACETATE) [Concomitant]

REACTIONS (3)
  - Herpes zoster [None]
  - Infection [None]
  - Cystitis [None]
